FAERS Safety Report 14738664 (Version 1)
Quarter: 2018Q2

REPORT INFORMATION
  Report Type: Spontaneous
  Country: US (occurrence: US)
  Receive Date: 20180404
  Receipt Date: 20180404
  Transmission Date: 20180711
  Serious: Yes (Other)
  Sender: FDA-Public Use
  Company Number: None

PATIENT
  Age: 17 Year
  Sex: Female

DRUGS (6)
  1. SALT STICKS [Concomitant]
  2. B2 [Concomitant]
  3. MULTIVITAMIN [Concomitant]
     Active Substance: VITAMINS
  4. DYMISTA [Suspect]
     Active Substance: AZELASTINE HYDROCHLORIDE\FLUTICASONE PROPIONATE
     Indication: SINUS DISORDER
     Dosage: ?          OTHER STRENGTH:MCG PER SPRAY;QUANTITY:1 SPRAY(S);?
     Route: 055
     Dates: start: 20180321, end: 20180321
  5. H1 AND H2 ANTIHISTAMINES [Concomitant]
  6. VITAMIN D3 [Concomitant]
     Active Substance: CHOLECALCIFEROL

REACTIONS (3)
  - Oropharyngeal pain [None]
  - Mass [None]
  - Swelling [None]

NARRATIVE: CASE EVENT DATE: 20180321
